FAERS Safety Report 7813816 (Version 2)
Quarter: 2014Q3

REPORT INFORMATION
  Report Type: Spontaneous
  Country: US (occurrence: US)
  Receive Date: 20110216
  Receipt Date: 20140918
  Transmission Date: 20150326
  Serious: Yes (Hospitalization)
  Sender: FDA-Public Use
  Company Number: US-RANBAXY-2011US-41662

PATIENT
  Age: 47 Year
  Sex: Female

DRUGS (2)
  1. IBUPROFEN. [Suspect]
     Active Substance: IBUPROFEN
     Indication: PRODUCT USED FOR UNKNOWN INDICATION
     Dosage: UPTO 3600 MG/DAY
     Route: 065
  2. CALCIUM CARBONATE. [Suspect]
     Active Substance: CALCIUM CARBONATE
     Indication: DYSPEPSIA
     Dosage: UPTO 4500 MG/DAY
     Route: 048

REACTIONS (4)
  - Hypercalcaemia [Recovered/Resolved]
  - Renal failure acute [Recovering/Resolving]
  - Dehydration [Recovering/Resolving]
  - Milk-alkali syndrome [Recovering/Resolving]
